FAERS Safety Report 16808273 (Version 1)
Quarter: 2019Q3

REPORT INFORMATION
  Report Type: Report from Study
  Country: US (occurrence: US)
  Receive Date: 20190916
  Receipt Date: 20190916
  Transmission Date: 20191005
  Serious: Yes (Hospitalization)
  Sender: FDA-Public Use
  Company Number: US-ROCHE-2408421

PATIENT
  Age: 55 Year
  Sex: Female
  Weight: 80 kg

DRUGS (6)
  1. ATEZOLIZUMAB. [Suspect]
     Active Substance: ATEZOLIZUMAB
     Indication: TRIPLE NEGATIVE BREAST CANCER
     Dosage: IV OVER 30-60 MINUTES ON DAY 1?CYCLE = 21 DAYS (4 CYCLES).?LAST DOSE PRIOR TO SAE: 06/DEC/2018.
     Route: 042
     Dates: start: 20180927
  2. NEULASTA [Concomitant]
     Active Substance: PEGFILGRASTIM
     Route: 065
  3. CYCLOPHOSPHAMIDE. [Concomitant]
     Active Substance: CYCLOPHOSPHAMIDE
     Dosage: C3
     Route: 065
  4. PACLITAXEL. [Suspect]
     Active Substance: PACLITAXEL
     Indication: TRIPLE NEGATIVE BREAST CANCER
     Dosage: OVER 60 MINUTES ON DAY 1, 8, 15.?LAST DOSE: 13/DEC/2018.
     Route: 042
     Dates: start: 20180927
  5. CARBOPLATIN. [Suspect]
     Active Substance: CARBOPLATIN
     Indication: TRIPLE NEGATIVE BREAST CANCER
     Dosage: AUC5 IV OVER 30 MINUTES ON DAY 1.?LAST DOSE: 13/DEC/2018.
     Route: 042
     Dates: start: 20180927
  6. DOXORUBICIN [Concomitant]
     Active Substance: DOXORUBICIN
     Dosage: C3
     Route: 065

REACTIONS (1)
  - Proctitis [Recovering/Resolving]

NARRATIVE: CASE EVENT DATE: 20190511
